FAERS Safety Report 24098527 (Version 1)
Quarter: 2024Q3

REPORT INFORMATION
  Report Type: Spontaneous
  Country: EU (occurrence: None)
  Receive Date: 20240716
  Receipt Date: 20240716
  Transmission Date: 20241016
  Serious: Yes (Other)
  Sender: ETHYPHARM
  Company Number: None

PATIENT

DRUGS (6)
  1. LORMETAZEPAM [Suspect]
     Active Substance: LORMETAZEPAM
  2. BUPRENORPHINE HYDROCHLORIDE [Suspect]
     Active Substance: BUPRENORPHINE HYDROCHLORIDE
  3. ARIPIPRAZOLE [Concomitant]
     Active Substance: ARIPIPRAZOLE
  4. OLANZAPINE [Concomitant]
     Active Substance: OLANZAPINE
  5. ALCOHOL [Suspect]
     Active Substance: ALCOHOL
  6. OXAZEPAM [Suspect]
     Active Substance: OXAZEPAM

REACTIONS (2)
  - Coma [Recovered/Resolved]
  - Drug use disorder [Unknown]

NARRATIVE: CASE EVENT DATE: 20240127
